FAERS Safety Report 22219613 (Version 4)
Quarter: 2023Q4

REPORT INFORMATION
  Report Type: Report from Study
  Country: US (occurrence: None)
  Receive Date: 20230417
  Receipt Date: 20231107
  Transmission Date: 20240109
  Serious: Yes (Death, Hospitalization)
  Sender: FDA-Public Use
  Company Number: US-ROCHE-3119492

PATIENT
  Sex: Male
  Weight: 58.3 kg

DRUGS (28)
  1. TOCILIZUMAB [Suspect]
     Active Substance: TOCILIZUMAB
     Indication: Plasma cell myeloma
     Route: 042
     Dates: start: 20220615
  2. CEVOSTAMAB [Suspect]
     Active Substance: CEVOSTAMAB
     Indication: Plasma cell myeloma
     Dosage: DOSE LAST STUDY DRUG ADMIN PRIOR AE 3.6 MG, START DATE AND END DATE OF MOST RECENT DOSE OF STUDY DRU
     Route: 042
     Dates: start: 20220614
  3. CODEINE PHOSPHATE\GUAIFENESIN [Concomitant]
     Active Substance: CODEINE PHOSPHATE\GUAIFENESIN
     Indication: Cough
     Dosage: QID
     Route: 048
     Dates: start: 20221116, end: 20221118
  4. BENZONATATE [Concomitant]
     Active Substance: BENZONATATE
     Dates: start: 20221116, end: 20221116
  5. SODIUM CHLORIDE [Concomitant]
     Active Substance: SODIUM CHLORIDE
     Indication: Plasma cell myeloma
     Dosage: QD
     Route: 042
     Dates: start: 20230215, end: 20230215
  6. MELPHALAN [Concomitant]
     Active Substance: MELPHALAN
     Indication: Neoplasm malignant
  7. BORTEZOMIB [Concomitant]
     Active Substance: BORTEZOMIB
     Indication: Neoplasm malignant
  8. POMALIDOMIDE [Concomitant]
     Active Substance: POMALIDOMIDE
     Indication: Neoplasm malignant
  9. COENZYME Q10 [Concomitant]
     Active Substance: DIETARY SUPPLEMENT\UBIDECARENONE
     Route: 048
     Dates: start: 202004
  10. ROSUVASTATIN [Concomitant]
     Active Substance: ROSUVASTATIN
     Indication: Hyperlipidaemia
     Route: 048
  11. VALACYCLOVIR HYDROCHLORIDE [Concomitant]
     Active Substance: VALACYCLOVIR HYDROCHLORIDE
     Route: 048
  12. CALCIUM CARBONATE [Concomitant]
     Active Substance: CALCIUM CARBONATE
     Indication: Dyspepsia
     Route: 048
     Dates: start: 202004
  13. GUAIFENESIN [Concomitant]
     Active Substance: GUAIFENESIN
     Indication: Cough
     Route: 048
     Dates: start: 202205
  14. GUAIFENESIN [Concomitant]
     Active Substance: GUAIFENESIN
     Route: 048
     Dates: start: 20221116, end: 20221118
  15. LAMOTRIGINE [Concomitant]
     Active Substance: LAMOTRIGINE
     Indication: Bipolar disorder
     Route: 048
  16. FLUTICASONE [Concomitant]
     Active Substance: FLUTICASONE
     Indication: Nasal congestion
     Dosage: 2 SPRAY
     Route: 045
     Dates: start: 202205
  17. BACLOFEN [Concomitant]
     Active Substance: BACLOFEN
     Indication: Hiccups
     Route: 048
     Dates: start: 202204
  18. SENNA [Concomitant]
     Active Substance: SENNA LEAF\SENNOSIDES\SENNOSIDES A AND B
     Indication: Constipation
     Route: 048
     Dates: start: 202003
  19. GABAPENTIN [Concomitant]
     Active Substance: GABAPENTIN
     Indication: Pain
     Route: 048
     Dates: start: 202204
  20. ONDANSETRON [Concomitant]
     Active Substance: ONDANSETRON
     Indication: Nausea
     Route: 048
     Dates: start: 202106
  21. COLACE [Concomitant]
     Active Substance: DOCUSATE SODIUM
     Indication: Constipation
     Route: 048
     Dates: start: 202204
  22. CETIRIZINE [Concomitant]
     Active Substance: CETIRIZINE HYDROCHLORIDE
     Indication: Hypersensitivity
     Route: 048
     Dates: start: 202204
  23. OMEPRAZOLE [Concomitant]
     Active Substance: OMEPRAZOLE
     Indication: Gastrooesophageal reflux disease
     Route: 048
     Dates: start: 202204
  24. ASCORBIC ACID [Concomitant]
     Active Substance: ASCORBIC ACID
     Route: 048
     Dates: start: 202106
  25. SODIUM CHLORIDE [Concomitant]
     Active Substance: SODIUM CHLORIDE
     Indication: Nasal congestion
     Route: 045
     Dates: start: 202206
  26. ALLOPURINOL [Concomitant]
     Active Substance: ALLOPURINOL
     Route: 048
     Dates: start: 20200331
  27. ACETAMINOPHEN [Concomitant]
     Active Substance: ACETAMINOPHEN
     Indication: Pyrexia
     Route: 042
     Dates: start: 20220614, end: 20220615
  28. LEVALBUTEROL [Concomitant]
     Active Substance: LEVALBUTEROL
     Indication: Cough
     Route: 055
     Dates: start: 20221116, end: 20221119

REACTIONS (4)
  - Cytokine release syndrome [Recovered/Resolved]
  - Pneumonia [Recovered/Resolved]
  - Pneumonia [Recovered/Resolved]
  - Plasma cell myeloma [Fatal]

NARRATIVE: CASE EVENT DATE: 20220614
